FAERS Safety Report 9669115 (Version 2)
Quarter: 2013Q4

REPORT INFORMATION
  Report Type: Spontaneous
  Country: US (occurrence: US)
  Receive Date: 20131105
  Receipt Date: 20131118
  Transmission Date: 20140711
  Serious: Yes (Death)
  Sender: FDA-Public Use
  Company Number: US-ASTELLAS-2013US011399

PATIENT
  Sex: Female

DRUGS (2)
  1. TARCEVA [Suspect]
     Indication: LUNG NEOPLASM MALIGNANT
     Dosage: 150 MG, UID/QD
     Route: 065
     Dates: start: 20121110
  2. TARCEVA [Suspect]
     Dosage: 150 MG, UNKNOWN/D
     Route: 065
     Dates: start: 20111011

REACTIONS (1)
  - Malignant neoplasm progression [Fatal]
